FAERS Safety Report 22193736 (Version 2)
Quarter: 2023Q2

REPORT INFORMATION
  Report Type: Other
  Country: CN (occurrence: CN)
  Receive Date: 20230410
  Receipt Date: 20230424
  Transmission Date: 20230721
  Serious: Yes (Other)
  Sender: FDA-Public Use
  Company Number: CN-BoehringerIngelheim-2023-BI-230179

PATIENT
  Age: 68 Year
  Sex: Female

DRUGS (2)
  1. ALTEPLASE [Suspect]
     Active Substance: ALTEPLASE
     Indication: Capsular warning syndrome
     Dosage: 10 %
     Route: 042
     Dates: start: 20220922, end: 20220922
  2. ALTEPLASE [Suspect]
     Active Substance: ALTEPLASE
     Indication: Cerebral infarction
     Dosage: 90% INTRAVENOUS DRIP
     Route: 042
     Dates: end: 20220922

REACTIONS (2)
  - Cerebral infarction [Recovering/Resolving]
  - Capsular warning syndrome [Recovering/Resolving]

NARRATIVE: CASE EVENT DATE: 20220922
